FAERS Safety Report 7936670-0 (Version None)
Quarter: 2011Q4

REPORT INFORMATION
  Report Type: 
  Country: None (occurrence: None)
  Receive Date: 20111123
  Receipt Date: 20111118
  Transmission Date: 20120403
  Serious: Yes (Other)
  Sender: FDA-Public Use
  Company Number: US-BAYER-2011-086473

PATIENT
  Age: 60 Year
  Sex: Female

DRUGS (5)
  1. VITAMIN TAB [Concomitant]
  2. ALCOHOL [Interacting]
     Dosage: UNK
     Dates: start: 20110804
  3. FEMHRT [Concomitant]
  4. LEVITRA [Suspect]
     Dosage: UNK
     Dates: start: 20110804
  5. HORMONES NOS [Concomitant]

REACTIONS (6)
  - NASAL CONGESTION [None]
  - LOSS OF CONSCIOUSNESS [None]
  - RHINORRHOEA [None]
  - TINNITUS [None]
  - DIZZINESS [None]
  - VISION BLURRED [None]
